FAERS Safety Report 6065986-0 (Version None)
Quarter: 2009Q1

REPORT INFORMATION
  Report Type: 
  Country: None (occurrence: None)
  Receive Date: 20090130
  Receipt Date: 20090116
  Transmission Date: 20090719
  Serious: Yes (Hospitalization)
  Sender: FDA-Public Use
  Company Number: FR-1168421

PATIENT
  Age: 65 Year
  Sex: Male

DRUGS (2)
  1. TRAVATAN [Suspect]
     Indication: GLAUCOMA
     Dosage: NI, OPHTHALMIC
     Route: 047
     Dates: start: 20081201
  2. SYSTEMIC SCLERODERMA [Concomitant]

REACTIONS (3)
  - C-REACTIVE PROTEIN INCREASED [None]
  - CONJUNCTIVAL HYPERAEMIA [None]
  - HEADACHE [None]
